FAERS Safety Report 8788051 (Version 1)
Quarter: 2012Q4

REPORT INFORMATION
  Report Type: 
  Country: JP (occurrence: JP)
  Receive Date: 20120914
  Receipt Date: 20120914
  Transmission Date: 20130627
  Serious: Yes (Other)
  Sender: FDA-Public Use
  Company Number: JP-PFIZER INC-2012193691

PATIENT
  Age: 41 Year
  Sex: Male
  Weight: 71.1 kg

DRUGS (2)
  1. ZITHROMAC [Suspect]
     Indication: BRONCHOPNEUMONIA
     Dosage: UNK
     Route: 048
     Dates: start: 20120723
  2. CEFOPERAZONE SODIUM/SULBACTAM SODIUM [Suspect]
     Indication: BRONCHOPNEUMONIA
     Dosage: UNK
     Route: 041
     Dates: start: 20120723

REACTIONS (6)
  - Hypoalbuminaemia [Recovered/Resolved]
  - Hypoproteinaemia [Recovered/Resolved]
  - Oedema peripheral [Recovering/Resolving]
  - Diarrhoea [Recovered/Resolved]
  - Vomiting [Recovered/Resolved]
  - Decreased appetite [Recovered/Resolved]
